FAERS Safety Report 5861389-X (Version None)
Quarter: 2008Q3

REPORT INFORMATION
  Report Type: 
  Country: None (occurrence: None)
  Receive Date: 20080827
  Receipt Date: 20080418
  Transmission Date: 20090109
  Serious: No
  Sender: FDA-Public Use
  Company Number: US-ABBOTT-08P-163-0448041-00

PATIENT
  Sex: Female
  Weight: 77.18 kg

DRUGS (3)
  1. COATED PDS [Suspect]
     Indication: BLOOD TRIGLYCERIDES INCREASED
     Route: 048
     Dates: start: 20080417
  2. ACETYLSALICYLIC ACID SRT [Concomitant]
     Indication: PROPHYLAXIS
     Route: 048
     Dates: start: 20080418
  3. ACETYLSALICYLIC ACID SRT [Concomitant]
     Indication: HOT FLUSH

REACTIONS (2)
  - DIZZINESS [None]
  - HOT FLUSH [None]
